FAERS Safety Report 6723838-4 (Version None)
Quarter: 2010Q2

REPORT INFORMATION
  Report Type: 
  Country: None (occurrence: None)
  Receive Date: 20100513
  Receipt Date: 20100305
  Transmission Date: 20101027
  Serious: Yes (Other)
  Sender: FDA-Public Use
  Company Number: US-ROCHE-662538

PATIENT
  Sex: Male

DRUGS (3)
  1. ACCUTANE [Suspect]
     Route: 048
     Dates: start: 19981118
  2. ACCUTANE [Suspect]
     Dosage: DOSAGE INCREASED
     Route: 048
     Dates: start: 19990119
  3. ACCUTANE [Suspect]
     Dosage: DOSE INCREASED AND LATER DISCONTINUED
     Route: 048
     Dates: start: 19990219, end: 19990419

REACTIONS (8)
  - COLITIS ULCERATIVE [None]
  - CROHN'S DISEASE [None]
  - DRY SKIN [None]
  - EPISTAXIS [None]
  - INFLAMMATORY BOWEL DISEASE [None]
  - IRRITABLE BOWEL SYNDROME [None]
  - LIP DRY [None]
  - RASH [None]
